FAERS Safety Report 6722522-0 (Version None)
Quarter: 2010Q2

REPORT INFORMATION
  Report Type: 
  Country: None (occurrence: None)
  Receive Date: 20100512
  Receipt Date: 20100429
  Transmission Date: 20101027
  Serious: Yes (Hospitalization)
  Sender: FDA-Public Use
  Company Number: US-ELI_LILLY_AND_COMPANY-US201005001068

PATIENT
  Sex: Male

DRUGS (6)
  1. CYMBALTA [Suspect]
     Indication: DEPRESSION
     Dosage: 40 MG, UNK
  2. CYMBALTA [Suspect]
     Dosage: 20 MG, DAILY (1/D)
  3. LISINOPRIL [Concomitant]
     Dosage: UNK, DAILY (1/D)
  4. ASPIRIN [Concomitant]
     Dosage: 321 MG, UNK
  5. OMEGA 3 FISH [Concomitant]
  6. VITAMIN D [Concomitant]

REACTIONS (6)
  - ABNORMAL BEHAVIOUR [None]
  - DISTURBANCE IN ATTENTION [None]
  - FEELING ABNORMAL [None]
  - HEART VALVE OPERATION [None]
  - SEXUAL DYSFUNCTION [None]
  - SOMNOLENCE [None]
